FAERS Safety Report 8683652 (Version 2)
Quarter: 2012Q4

REPORT INFORMATION
  Report Type: Spontaneous
  Country: US (occurrence: None)
  Receive Date: 20120711
  Receipt Date: 20120821
  Transmission Date: 20130627
  Serious: Yes (Death, Other)
  Sender: FDA-Public Use
  Company Number: TPA2012A04096

PATIENT
  Sex: Male

DRUGS (2)
  1. ACTOS [Suspect]
     Indication: TYPE 2 DIABETES MELLITUS
     Dates: start: 2001, end: 2011
  2. DIABETA (GLIBENCLAMIDE) [Concomitant]

REACTIONS (4)
  - Bladder cancer [None]
  - Respiratory arrest [None]
  - Hepatic cancer [None]
  - Terminal state [None]
